FAERS Safety Report 9664663 (Version 1)
Quarter: 2013Q4

REPORT INFORMATION
  Report Type: Spontaneous
  Country: JP (occurrence: None)
  Receive Date: 20131031
  Receipt Date: 20131031
  Transmission Date: 20140711
  Serious: Yes (Other)
  Sender: FDA-Public Use
  Company Number: FK201304769

PATIENT
  Age: 71 Year
  Sex: Male

DRUGS (4)
  1. FLUOROURACIL (MANUFACTURER UNKNOWN) (FLUOROURACIL) (FLUOROURACIL) [Suspect]
     Indication: COLON CANCER METASTATIC
  2. FOLINIC ACID (FOLINIC ACID) [Concomitant]
  3. OXALIPLATIN (OXALIPLATIN) [Concomitant]
  4. BEVACIZUMAB (BEVACIZUMAB [Concomitant]

REACTIONS (1)
  - Hypothyroidism [None]
